FAERS Safety Report 23781048 (Version 13)
Quarter: 2025Q3

REPORT INFORMATION
  Report Type: Report from Study
  Country: CA (occurrence: CA)
  Receive Date: 20240425
  Receipt Date: 20250718
  Transmission Date: 20251021
  Serious: Yes (Hospitalization, Other)
  Sender: SANDOZ
  Company Number: CA-002147023-NVSC2020CA094040

PATIENT
  Age: 73 Year
  Sex: Female

DRUGS (21)
  1. ERELZI [Suspect]
     Active Substance: ETANERCEPT-SZZS
     Dosage: 50 MG, QW
     Route: 058
     Dates: start: 20230404
  2. ERELZI [Suspect]
     Active Substance: ETANERCEPT-SZZS
     Indication: Psoriatic arthropathy
     Dosage: 50 MG, QW
     Route: 058
     Dates: start: 20191018
  3. ERELZI [Suspect]
     Active Substance: ETANERCEPT-SZZS
     Dosage: 50 MG, Q2W
     Route: 058
     Dates: start: 20191018
  4. ERELZI [Suspect]
     Active Substance: ETANERCEPT-SZZS
     Dosage: 50 MG, Q2W
     Route: 058
     Dates: start: 20240507
  5. ERELZI [Suspect]
     Active Substance: ETANERCEPT-SZZS
     Dosage: 50 MG, Q2W
     Route: 058
     Dates: start: 20240521
  6. ERELZI [Suspect]
     Active Substance: ETANERCEPT-SZZS
     Dosage: 50 MG, Q2W
     Route: 058
     Dates: start: 20240604
  7. ERELZI [Suspect]
     Active Substance: ETANERCEPT-SZZS
     Dosage: 50 MG, Q2W
     Route: 058
     Dates: start: 20240618
  8. ERELZI [Suspect]
     Active Substance: ETANERCEPT-SZZS
     Dosage: 50 MG, Q2W
     Route: 058
     Dates: start: 20240702
  9. ERELZI [Suspect]
     Active Substance: ETANERCEPT-SZZS
     Dosage: 50 MG, Q2W
     Route: 058
     Dates: start: 20240813
  10. ERELZI [Suspect]
     Active Substance: ETANERCEPT-SZZS
     Dosage: 50 MG, Q2W
     Route: 058
     Dates: start: 20241022
  11. ERELZI [Suspect]
     Active Substance: ETANERCEPT-SZZS
     Dosage: 50 MG, Q2W, 50MG/ML, (PRE-FILLED PEN)
     Route: 058
     Dates: start: 20241231
  12. ERELZI [Suspect]
     Active Substance: ETANERCEPT-SZZS
     Dosage: 50 MG, Q2W, DOSING FREQUENCY: Q2 WEEKS;EVERY TWO WEEKS, 25MG/0.5ML, PRE-FILLED SYRINGE
     Route: 058
     Dates: start: 20250128
  13. ERELZI [Suspect]
     Active Substance: ETANERCEPT-SZZS
     Dosage: 50 MG, QW (PRE-FILLED PEN)
     Route: 058
     Dates: start: 20191018
  14. ERELZI [Suspect]
     Active Substance: ETANERCEPT-SZZS
     Dosage: 50 MG, Q2W
     Route: 058
  15. ERELZI [Suspect]
     Active Substance: ETANERCEPT-SZZS
     Dosage: 50 MG, Q2W
     Route: 058
     Dates: start: 20250520
  16. ERELZI [Suspect]
     Active Substance: ETANERCEPT-SZZS
     Dosage: 50 MG, Q2W
     Route: 058
  17. ERELZI [Suspect]
     Active Substance: ETANERCEPT-SZZS
     Dosage: 50 MG, Q2W (STRENGTH 50MG/ML (PEN))
     Route: 058
     Dates: start: 20250408
  18. ERELZI [Suspect]
     Active Substance: ETANERCEPT-SZZS
     Route: 058
     Dates: start: 20230412
  19. ERELZI [Suspect]
     Active Substance: ETANERCEPT-SZZS
     Route: 058
     Dates: start: 20230418
  20. METHOTREXATE [Concomitant]
     Active Substance: METHOTREXATE
     Indication: Product used for unknown indication
     Route: 065
     Dates: start: 201903
  21. TRAZODONE [Concomitant]
     Active Substance: TRAZODONE HYDROCHLORIDE
     Indication: Product used for unknown indication
     Route: 065

REACTIONS (8)
  - Hip fracture [Unknown]
  - Pneumonia [Unknown]
  - Chest pain [Recovering/Resolving]
  - Muscle strain [Recovering/Resolving]
  - Myalgia [Recovering/Resolving]
  - Fatigue [Unknown]
  - Inappropriate schedule of product administration [Unknown]
  - Off label use [Unknown]

NARRATIVE: CASE EVENT DATE: 20210924
